FAERS Safety Report 6996236-6 (Version None)
Quarter: 2010Q3

REPORT INFORMATION
  Report Type: 
  Country: None (occurrence: None)
  Receive Date: 20100918
  Receipt Date: 20090114
  Transmission Date: 20110219
  Serious: No
  Sender: FDA-Public Use
  Company Number: US-WYE-H07710209

PATIENT
  Age: 74 Year
  Sex: Male

DRUGS (5)
  1. EFFEXOR XR [Suspect]
     Indication: ANXIETY
     Route: 048
     Dates: start: 20070101
  2. EFFEXOR XR [Suspect]
     Indication: DEPRESSION
  3. CARDURA [Concomitant]
  4. PROVIGIL [Concomitant]
  5. LORAZEPAM [Concomitant]

REACTIONS (3)
  - DECREASED INTEREST [None]
  - DRUG EFFECT DECREASED [None]
  - SOMNOLENCE [None]
